FAERS Safety Report 8541269-1 (Version None)
Quarter: 2012Q3

REPORT INFORMATION
  Report Type: 
  Country: None (occurrence: None)
  Receive Date: 20120726
  Receipt Date: 20120719
  Transmission Date: 20120928
  Serious: Yes (Hospitalization, Other)
  Sender: FDA-Public Use
  Company Number: JP-PFIZER INC-2012164107

PATIENT
  Age: 64 Year
  Sex: Female
  Weight: 27 kg

DRUGS (13)
  1. OPALMON [Concomitant]
     Indication: BACK PAIN
     Dosage: 5 UG, 3X/DAY
     Route: 048
     Dates: start: 20120515
  2. LYRICA [Suspect]
     Indication: BACK PAIN
     Dosage: 75 MG, 2X/DAY
     Route: 048
     Dates: start: 20120523, end: 20120605
  3. ASACOL [Concomitant]
     Indication: COLITIS ULCERATIVE
     Dosage: 1200 MG, 3X/DAY
     Route: 048
     Dates: start: 20110105
  4. PREDNISOLONE [Concomitant]
     Indication: COLITIS ULCERATIVE
     Dosage: UNK
     Route: 048
     Dates: start: 20060801, end: 20120124
  5. MIYA BM [Concomitant]
     Dosage: UNK
     Route: 048
     Dates: start: 20120620
  6. IMURAN [Concomitant]
     Indication: COLITIS ULCERATIVE
     Dosage: 25 MG, 1X/DAY
     Route: 048
     Dates: start: 20070222
  7. DIART [Concomitant]
     Indication: OEDEMA
     Dosage: 30 MG, 1X/DAY
     Route: 048
     Dates: start: 20080730
  8. LYRICA [Suspect]
     Dosage: 150 MG, 2X/DAY
     Route: 048
     Dates: start: 20120606, end: 20120626
  9. ALENDRONATE SODIUM [Concomitant]
     Indication: OSTEOPOROSIS
     Dosage: 35 MG, WEEKLY
     Route: 048
     Dates: start: 20090422
  10. PREDNISOLONE [Concomitant]
     Dosage: 7.5 MG, 1X/DAY
     Route: 048
     Dates: start: 20120125
  11. LYRICA [Suspect]
     Dosage: 150 MG, 2X/DAY
     Route: 048
     Dates: start: 20120705, end: 20120706
  12. ONE-ALPHA [Concomitant]
     Indication: OSTEOPOROSIS
     Dosage: 1.0 UG, 1X/DAY
     Route: 048
     Dates: start: 20080723
  13. FIRSTCIN [Concomitant]
     Indication: BRONCHITIS
     Dosage: 1 G, 2X/DAY
     Route: 042
     Dates: start: 20120627, end: 20120702

REACTIONS (5)
  - DEPRESSED LEVEL OF CONSCIOUSNESS [None]
  - HYPERCAPNIA [None]
  - BRONCHITIS [None]
  - RESPIRATORY FAILURE [None]
  - PNEUMONIA [None]
